FAERS Safety Report 10935784 (Version 1)
Quarter: 2015Q1

REPORT INFORMATION
  Report Type: Spontaneous
  Country: GB (occurrence: GB)
  Receive Date: 20150320
  Receipt Date: 20150320
  Transmission Date: 20150721
  Serious: Yes (Other)
  Sender: FDA-Public Use
  Company Number: GB-ELI_LILLY_AND_COMPANY-GB201502002685

PATIENT
  Age: 38 Year
  Sex: Female

DRUGS (1)
  1. HUMULIN N [Suspect]
     Active Substance: INSULIN HUMAN
     Indication: PRODUCT USED FOR UNKNOWN INDICATION
     Dosage: 6 U, QD
     Route: 065
     Dates: start: 20150203

REACTIONS (5)
  - Pain [Unknown]
  - Injection site rash [Unknown]
  - Injection site pruritus [Not Recovered/Not Resolved]
  - Wrong technique in drug usage process [Unknown]
  - Rib fracture [Unknown]

NARRATIVE: CASE EVENT DATE: 20150203
